FAERS Safety Report 5010583-9 (Version None)
Quarter: 2006Q2

REPORT INFORMATION
  Report Type: 
  Country: None (occurrence: None)
  Receive Date: 20060525
  Receipt Date: 20060516
  Transmission Date: 20061013
  Serious: Yes (Hospitalization, Other)
  Sender: FDA-Public Use
  Company Number: US-KINGPHARMUSA00001-K200600636

PATIENT
  Age: 77 Year
  Sex: Male

DRUGS (4)
  1. ALTACE [Suspect]
     Indication: HYPERTENSION
     Dosage: 10 MG, QD
     Route: 048
     Dates: start: 20060201, end: 20060201
  2. COUMADIN [Suspect]
  3. LANOXIN [Suspect]
  4. DILATREND [Suspect]

REACTIONS (3)
  - COUGH [None]
  - DYSPHONIA [None]
  - VOCAL CORD PARALYSIS [None]
